FAERS Safety Report 12855261 (Version 1)
Quarter: 2016Q4

REPORT INFORMATION
  Report Type: Report from Study
  Country: US (occurrence: US)
  Receive Date: 20161017
  Receipt Date: 20161017
  Transmission Date: 20170207
  Serious: Yes (Hospitalization, Other)
  Sender: FDA-Public Use
  Company Number: PHEH2016US026093

PATIENT
  Sex: Female

DRUGS (1)
  1. ENTRESTO [Suspect]
     Active Substance: SACUBITRIL\VALSARTAN
     Indication: PRODUCT USED FOR UNKNOWN INDICATION
     Dosage: 50 MG, BID
     Route: 065

REACTIONS (11)
  - Head injury [Unknown]
  - Blood pressure decreased [Unknown]
  - Vertigo [Unknown]
  - Asthenia [Unknown]
  - Skin abrasion [Unknown]
  - Vomiting [Unknown]
  - Renal failure [Unknown]
  - Fall [Unknown]
  - Loss of consciousness [Unknown]
  - Dehydration [Unknown]
  - Eye contusion [Unknown]
